FAERS Safety Report 4398126-4 (Version None)
Quarter: 2004Q3

REPORT INFORMATION
  Report Type: 
  Country: None (occurrence: None)
  Receive Date: 20040715
  Receipt Date: 20040706
  Transmission Date: 20050211
  Serious: Yes (Hospitalization)
  Sender: FDA-Public Use
  Company Number: PHRM2004FR02291

PATIENT
  Age: 67 Year
  Sex: Male

DRUGS (6)
  1. TEGRETOL [Suspect]
     Indication: EPILEPSY
     Dosage: 600 MG/DAY
     Route: 048
     Dates: start: 19891015
  2. DEPAKENE [Suspect]
     Indication: EPILEPSY
     Dosage: 3000 MG/DAY
     Route: 048
  3. DANTRIUM [Concomitant]
     Route: 065
  4. PLAVIX [Concomitant]
     Route: 048
  5. ASPIRIN [Concomitant]
     Route: 048
  6. TRAMADOL HCL [Concomitant]
     Route: 048

REACTIONS (12)
  - ANAEMIA [None]
  - ASTHENIA [None]
  - BIOPSY BONE MARROW ABNORMAL [None]
  - HYPERHIDROSIS [None]
  - HYPOTENSION [None]
  - MALAISE [None]
  - PALLOR [None]
  - PLEURAL EFFUSION [None]
  - PNEUMONIA STREPTOCOCCAL [None]
  - PNEUMOTHORAX [None]
  - THROMBOCYTOPENIA [None]
  - VISION BLURRED [None]
